FAERS Safety Report 8160274-0 (Version None)
Quarter: 2012Q1

REPORT INFORMATION
  Report Type: 
  Country: None (occurrence: None)
  Receive Date: 20120223
  Receipt Date: 20120223
  Transmission Date: 20120608
  Serious: Yes (Life-Threatening)
  Sender: FDA-Public Use
  Company Number: None

PATIENT
  Age: 20 Year
  Sex: Female
  Weight: 74.842 kg

DRUGS (1)
  1. FERUMOXYTOL [Suspect]
     Indication: ANAEMIA
     Dosage: 510MG
     Route: 040
     Dates: start: 20120215, end: 20120222

REACTIONS (2)
  - BLOOD PRESSURE INCREASED [None]
  - CHEST DISCOMFORT [None]
